FAERS Safety Report 8763734 (Version 2)
Quarter: 2013Q1

REPORT INFORMATION
  Report Type: Spontaneous
  Country: US (occurrence: None)
  Receive Date: 20120828
  Receipt Date: 20121119
  Transmission Date: 20140127
  Serious: Yes (Other)
  Sender: FDA-Public Use
  Company Number: DKLU1083111

PATIENT
  Age: 52 Year
  Sex: Male

DRUGS (4)
  1. ONFI [Suspect]
     Indication: EPILEPSY
     Route: 048
     Dates: start: 20120209
  2. DILANTIN (PHENYTOIN) [Concomitant]
  3. VIMPAT (LACOSAMIDE) [Concomitant]
  4. KEPPRA (LEVETIRACETAM) [Concomitant]

REACTIONS (2)
  - Bronchitis [None]
  - Pneumonia [None]
